FAERS Safety Report 5228995-7 (Version None)
Quarter: 2007Q1

REPORT INFORMATION
  Report Type: 
  Country: None (occurrence: None)
  Receive Date: 20070205
  Receipt Date: 20070122
  Transmission Date: 20070707
  Serious: Yes (Life-Threatening, Hospitalization, Disabling, Other)
  Sender: FDA-Public Use
  Company Number: US-ELI_LILLY_AND_COMPANY-US200611005552

PATIENT
  Age: 60 Year
  Sex: Female
  Weight: 60.77 kg

DRUGS (6)
  1. EVISTA [Suspect]
     Indication: OSTEOPOROSIS
     Dosage: 60 MG, DAILY (1/D)
  2. EVISTA [Suspect]
     Dosage: 60 MG, DAILY (1/D)
     Dates: start: 20030101
  3. ZOLOFT [Concomitant]
     Dosage: 100 MG, DAILY (1/D)
  4. LIPITOR [Concomitant]
     Dosage: 10 MG, DAILY (1/D)
  5. VITAMINS NOS [Concomitant]
  6. VESICARE [Concomitant]
     Dosage: 5 MG, DAILY (1/D)

REACTIONS (5)
  - AMNESIA [None]
  - CAROTID ARTERY DISEASE [None]
  - LOSS OF CONSCIOUSNESS [None]
  - ROAD TRAFFIC ACCIDENT [None]
  - TRAUMATIC BRAIN INJURY [None]
